FAERS Safety Report 9183383 (Version 1)
Quarter: 2012Q4

REPORT INFORMATION
  Report Type: 
  Country: BR (occurrence: BR)
  Receive Date: 20121030
  Receipt Date: 20121030
  Transmission Date: 20130627
  Serious: Yes (Other)
  Sender: FDA-Public Use
  Company Number: PHHY2012BR097232

PATIENT
  Sex: Female
  Weight: 55 kg

DRUGS (6)
  1. ACLASTA [Suspect]
     Indication: OSTEOPOROSIS
     Dosage: 5 mg/100 ml, yearly
     Route: 042
     Dates: start: 20120126
  2. SOMALIUM [Concomitant]
     Indication: DEPRESSION
     Dosage: 0.5 DF, UNK
     Route: 048
  3. SOMALIUM [Concomitant]
     Indication: ANXIETY
  4. CITAM [Concomitant]
     Indication: DEPRESSION
     Dosage: 1 DF, daily
     Route: 048
  5. VITAMIIN A [Concomitant]
     Dosage: 3 gtt, daily
     Route: 048
  6. CALCIUM CARBONATE [Concomitant]
     Dosage: 1 DF, daily
     Route: 048

REACTIONS (9)
  - Bursitis [Recovering/Resolving]
  - Gait disturbance [Not Recovered/Not Resolved]
  - Joint crepitation [Recovering/Resolving]
  - Drug dependence [Recovering/Resolving]
  - Oedema peripheral [Recovering/Resolving]
  - Back pain [Recovering/Resolving]
  - Myalgia [Recovering/Resolving]
  - Neck pain [Recovering/Resolving]
  - Headache [Recovered/Resolved]
